FAERS Safety Report 5372033-2 (Version None)
Quarter: 2007Q2

REPORT INFORMATION
  Report Type: 
  Country: None (occurrence: None)
  Receive Date: 20070625
  Receipt Date: 20070619
  Transmission Date: 20071010
  Serious: Yes (Death, Hospitalization)
  Sender: FDA-Public Use
  Company Number: 2007-157653-NL

PATIENT
  Age: 97 Year
  Sex: Female

DRUGS (3)
  1. MIRTAZAPINE [Suspect]
     Dosage: 15 MG QD ORAL
     Route: 048
  2. RISPERIDONE [Suspect]
     Dosage: 4 MG
  3. AMLODIPINE BESYLATE [Suspect]
     Dosage: DF

REACTIONS (18)
  - ANISOCHROMIA [None]
  - BLOOD LACTATE DEHYDROGENASE INCREASED [None]
  - BLOOD POTASSIUM INCREASED [None]
  - BODY TEMPERATURE DECREASED [None]
  - HAEMATOCRIT DECREASED [None]
  - HAEMOGLOBIN DECREASED [None]
  - HYPOCHROMASIA [None]
  - MEAN CELL HAEMOGLOBIN CONCENTRATION DECREASED [None]
  - MEAN CELL HAEMOGLOBIN DECREASED [None]
  - MEAN CELL VOLUME DECREASED [None]
  - NEUTROPHIL PERCENTAGE INCREASED [None]
  - OXYGEN SATURATION DECREASED [None]
  - PROTEIN TOTAL ABNORMAL [None]
  - RED BLOOD CELL ANISOCYTES PRESENT [None]
  - RED BLOOD CELL MICROCYTES PRESENT [None]
  - RED BLOOD CELL POIKILOCYTES PRESENT [None]
  - SUDDEN DEATH [None]
  - UNEVALUABLE EVENT [None]
